FAERS Safety Report 5194683-9 (Version None)
Quarter: 2006Q4

REPORT INFORMATION
  Report Type: 
  Country: None (occurrence: None)
  Receive Date: 20061229
  Receipt Date: 20061221
  Transmission Date: 20070319
  Serious: Yes (Life-Threatening, Hospitalization)
  Sender: FDA-Public Use
  Company Number: US-JNJFOC-20061206071

PATIENT
  Sex: Female
  Weight: 64 kg

DRUGS (4)
  1. FENTANYL TRANSDERMAL SYSTEM [Suspect]
     Indication: BREAST CANCER
     Route: 062
  2. PREVACID [Concomitant]
     Indication: GASTROINTESTINAL DISORDER
     Route: 048
  3. CARDIZEM [Concomitant]
     Indication: CARDIAC DISORDER
     Route: 048
  4. COREG [Concomitant]
     Indication: CARDIAC DISORDER
     Route: 048

REACTIONS (3)
  - MENTAL DISORDER [None]
  - RESPIRATORY ARREST [None]
  - WRONG TECHNIQUE IN DRUG USAGE PROCESS [None]
